FAERS Safety Report 12923429 (Version 2)
Quarter: 2016Q4

REPORT INFORMATION
  Report Type: Spontaneous
  Country: US (occurrence: US)
  Receive Date: 20161109
  Receipt Date: 20161117
  Transmission Date: 20170207
  Serious: No
  Sender: FDA-Public Use
  Company Number: US-BEH-2016075003

PATIENT
  Age: 11 Year
  Sex: Female

DRUGS (1)
  1. BERINERT [Suspect]
     Active Substance: HUMAN C1-ESTERASE INHIBITOR
     Indication: COMPLEMENT FACTOR ABNORMAL
     Dosage: 1000 IU, BIW
     Route: 042
     Dates: start: 20140906

REACTIONS (2)
  - Swelling face [Unknown]
  - Swollen tongue [Unknown]

NARRATIVE: CASE EVENT DATE: 20160211
